FAERS Safety Report 5871465-3 (Version None)
Quarter: 2008Q3

REPORT INFORMATION
  Report Type: 
  Country: None (occurrence: None)
  Receive Date: 20080905
  Receipt Date: 20080205
  Transmission Date: 20090109
  Serious: No
  Sender: FDA-Public Use
  Company Number: A0707507A

PATIENT
  Sex: Male

DRUGS (4)
  1. REQUIP [Suspect]
     Indication: PARKINSON'S DISEASE
     Dosage: 1MG THREE TIMES PER DAY
     Route: 048
  2. ZELAPAR [Concomitant]
  3. LEVODOPA [Concomitant]
  4. HERBAL SUPPLEMENT [Concomitant]

REACTIONS (2)
  - JOINT SWELLING [None]
  - OEDEMA PERIPHERAL [None]
